FAERS Safety Report 8135723-4 (Version None)
Quarter: 2012Q1

REPORT INFORMATION
  Report Type: 
  Country: None (occurrence: None)
  Receive Date: 20120214
  Receipt Date: 20120202
  Transmission Date: 20120608
  Serious: Yes (Hospitalization)
  Sender: FDA-Public Use
  Company Number: DE-ELI_LILLY_AND_COMPANY-DE201201001646

PATIENT
  Sex: Male

DRUGS (12)
  1. MARCUMAR [Concomitant]
     Dosage: UNK, 6/W
  2. GABAPENTIN [Concomitant]
     Dosage: 300 MG, QD
  3. METFORMIN HCL [Concomitant]
     Dosage: 1000 MG, BID
  4. NOVORAPID [Concomitant]
     Dosage: 50 U, QD
  5. TORSEMIDE [Concomitant]
     Dosage: 30 MG, QD
  6. RAMIPRIL [Concomitant]
     Dosage: 5 MG, BID
  7. CARVEDILOL [Concomitant]
     Dosage: 12.5 MG, BID
  8. REPAGLINIDE [Concomitant]
     Dosage: 2 MG, TID
  9. ACETYLDIGOXIN [Concomitant]
     Dosage: 0.2 DF, EACH MORNING
  10. ALLOPURINOL [Concomitant]
     Dosage: 100 MG, QD
  11. SPIRONOLACTONE [Concomitant]
     Dosage: 50 MG, QD
  12. BYDUREON [Suspect]
     Indication: TYPE 2 DIABETES MELLITUS
     Dosage: 2 MG, OTHER
     Route: 058

REACTIONS (4)
  - DIZZINESS [None]
  - OFF LABEL USE [None]
  - MALAISE [None]
  - CHEST PAIN [None]
